FAERS Safety Report 21794809 (Version 1)
Quarter: 2022Q4

REPORT INFORMATION
  Report Type: Spontaneous
  Country: US (occurrence: US)
  Receive Date: 20221229
  Receipt Date: 20221229
  Transmission Date: 20230113
  Serious: No
  Sender: FDA-Public Use
  Company Number: US-PFIZER INC-PV202200132275

PATIENT
  Sex: Female

DRUGS (1)
  1. MICRONASE [Suspect]
     Active Substance: GLYBURIDE
     Dosage: UNK
     Dates: end: 2021

REACTIONS (2)
  - Hypersensitivity [Unknown]
  - Urticaria [Unknown]

NARRATIVE: CASE EVENT DATE: 20210101
